FAERS Safety Report 9148455 (Version 4)
Quarter: 2013Q3

REPORT INFORMATION
  Report Type: Report from Study
  Country: IQ (occurrence: IQ)
  Receive Date: 20130308
  Receipt Date: 20130716
  Transmission Date: 20140515
  Serious: Yes (Other)
  Sender: FDA-Public Use
  Company Number: PHHY2013IQ013359

PATIENT
  Age: 39 Year
  Sex: Male

DRUGS (2)
  1. TASIGNA [Suspect]
     Indication: CHRONIC MYELOID LEUKAEMIA
     Dosage: 800 MG, DAILY
     Route: 048
     Dates: start: 20121219, end: 20130225
  2. TASIGNA [Suspect]
     Dosage: 400 MG, DAILY
     Route: 048
     Dates: start: 201306

REACTIONS (6)
  - Ear infection [Unknown]
  - Thrombocytopenia [Recovering/Resolving]
  - Leukocytosis [Not Recovered/Not Resolved]
  - Skin discolouration [Recovering/Resolving]
  - Abdominal pain [Recovering/Resolving]
  - Rash [Not Recovered/Not Resolved]
